FAERS Safety Report 22593062 (Version 1)
Quarter: 2023Q2

REPORT INFORMATION
  Report Type: Spontaneous
  Country: NO (occurrence: NO)
  Receive Date: 20230613
  Receipt Date: 20230613
  Transmission Date: 20230722
  Serious: Yes (Life-Threatening)
  Sender: FDA-Public Use
  Company Number: None

PATIENT
  Age: 39 Year
  Sex: Female
  Weight: 54 kg

DRUGS (5)
  1. SINGULAIR [Suspect]
     Active Substance: MONTELUKAST SODIUM
     Indication: Angioedema
     Dosage: 10 MILLIGRAM
     Route: 048
     Dates: start: 202009, end: 202303
  2. SINGULAIR [Suspect]
     Active Substance: MONTELUKAST SODIUM
     Indication: Urticaria
  3. EBASTINE [Concomitant]
     Active Substance: EBASTINE
     Indication: Urticaria
     Dosage: 5-20 MG
     Dates: start: 2018
  4. EBASTINE [Concomitant]
     Active Substance: EBASTINE
     Indication: Angioedema
  5. XOLAIR [Concomitant]
     Active Substance: OMALIZUMAB
     Indication: Angioedema
     Dosage: 300 MG
     Dates: start: 2018, end: 202212

REACTIONS (9)
  - Suicidal behaviour [Recovering/Resolving]
  - Mental disorder [Unknown]
  - Dysgeusia [Recovered/Resolved]
  - Abnormal dreams [Recovered/Resolved]
  - Depressed mood [Recovering/Resolving]
  - Decreased interest [Recovering/Resolving]
  - Sleep disorder [Recovered/Resolved]
  - Feeling abnormal [Recovering/Resolving]
  - Irritability [Recovering/Resolving]

NARRATIVE: CASE EVENT DATE: 20200901
